FAERS Safety Report 4635459-8 (Version None)
Quarter: 2005Q2

REPORT INFORMATION
  Report Type: 
  Country: None (occurrence: None)
  Receive Date: 20050413
  Receipt Date: 20050330
  Transmission Date: 20051028
  Serious: Yes (Other)
  Sender: FDA-Public Use
  Company Number: EM2005-0182

PATIENT
  Sex: Male

DRUGS (2)
  1. PROLEUKIN [Suspect]
     Indication: MALIGNANT MELANOMA
     Dosage: SEE IMAGE
  2. FAMOTIDINE [Suspect]
     Dosage: SEE IMAGE
     Route: 042

REACTIONS (1)
  - ATRIAL FIBRILLATION [None]
